FAERS Safety Report 8222442-9 (Version None)
Quarter: 2012Q1

REPORT INFORMATION
  Report Type: 
  Country: None (occurrence: None)
  Receive Date: 20120314
  Receipt Date: 20120227
  Transmission Date: 20120608
  Serious: Yes (Hospitalization)
  Sender: FDA-Public Use
  Company Number: WAES 1111USA03783

PATIENT
  Age: 20 Year
  Sex: Female

DRUGS (7)
  1. ISENTRESS [Suspect]
     Indication: HIV INFECTION
     Dosage: 800 MG/DAILY PO
     Route: 048
     Dates: start: 20100215, end: 20100303
  2. EPIVIR [Suspect]
     Indication: HIV INFECTION
     Dosage: 150 MG/BID PO
     Route: 048
     Dates: start: 20100215, end: 20100303
  3. CABERGOLINE [Concomitant]
  4. FERROUS CITRATE [Concomitant]
  5. LUTEONIN [Concomitant]
  6. ZIDOVUDINE [Concomitant]
  7. RETROVIR [Suspect]
     Indication: HIV INFECTION
     Dosage: 400 MG/DAILY PO
     Route: 048
     Dates: start: 20100215, end: 20100303

REACTIONS (6)
  - ANAEMIA [None]
  - MATERNAL EXPOSURE DURING PREGNANCY [None]
  - DISSEMINATED INTRAVASCULAR COAGULATION [None]
  - PROCEDURAL HAEMORRHAGE [None]
  - UTERINE HAEMORRHAGE [None]
  - CAESAREAN SECTION [None]
